FAERS Safety Report 7709527-8 (Version None)
Quarter: 2011Q3

REPORT INFORMATION
  Report Type: 
  Country: None (occurrence: None)
  Receive Date: 20110825
  Receipt Date: 20110818
  Transmission Date: 20111222
  Serious: Yes (Other)
  Sender: FDA-Public Use
  Company Number: US-AMGEN-USASP2011032691

PATIENT
  Age: 64 Year
  Sex: Female
  Weight: 63.946 kg

DRUGS (7)
  1. ESTRIOL [Concomitant]
     Dosage: 10 MG, 3 TIMES/WK
  2. PROLIA [Suspect]
     Indication: OSTEOPOROSIS POSTMENOPAUSAL
     Dosage: 60 MG, UNK
     Dates: start: 20110513, end: 20110513
  3. COQ10 [Concomitant]
     Dosage: 2 MG, UNK
  4. FISH OIL [Concomitant]
     Dosage: 2 MG, UNK
  5. BI EST [Concomitant]
  6. CALCIUM WITH VITAMIN D             /00944201/ [Concomitant]
     Dosage: UNK
  7. PROLIA [Suspect]
     Indication: OSTEOPENIA

REACTIONS (6)
  - HYPERSENSITIVITY [None]
  - PRURITUS [None]
  - RASH [None]
  - TOOTH DISORDER [None]
  - BLISTER [None]
  - MUSCULAR WEAKNESS [None]
